FAERS Safety Report 20422078 (Version 2)
Quarter: 2022Q1

REPORT INFORMATION
  Report Type: Spontaneous
  Country: US (occurrence: US)
  Receive Date: 20220203
  Receipt Date: 20220218
  Transmission Date: 20220423
  Serious: Yes (Other)
  Sender: FDA-Public Use
  Company Number: US-AMGEN-USASP2022012418

PATIENT
  Age: 83 Year
  Sex: Female

DRUGS (16)
  1. PROLIA [Suspect]
     Active Substance: DENOSUMAB
     Indication: Product used for unknown indication
     Dosage: UNK
     Route: 065
  2. COVID-19 VACCINE [Concomitant]
  3. PREDNISONE [Concomitant]
     Active Substance: PREDNISONE
  4. VINCRISTINE [Concomitant]
     Active Substance: VINCRISTINE
  5. ZOFRAN [Concomitant]
     Active Substance: ONDANSETRON HYDROCHLORIDE
     Indication: Nausea
     Dosage: 4 MILLIGRAM, Q8H AS NEEDED
     Route: 048
     Dates: start: 20210614, end: 20220207
  6. BARIUM [Concomitant]
     Active Substance: BARIUM
  7. CALCIUM CARBONATE [Concomitant]
     Active Substance: CALCIUM CARBONATE
     Dosage: 600 MILLIGRAM, QD
     Route: 048
  8. CHOLECALCIFEROL [Concomitant]
     Active Substance: CHOLECALCIFEROL
     Dosage: 5000 UNITS
     Route: 048
     Dates: start: 20220207
  9. FLUCONAZOLE [Concomitant]
     Active Substance: FLUCONAZOLE
     Dosage: 200 MILLIGRAM, QD
     Route: 048
     Dates: start: 20210614, end: 20220207
  10. PROBIOTICS NOS [Concomitant]
     Active Substance: PROBIOTICS NOS
     Dosage: 1 PACKATE
     Route: 048
  11. LISINOPRIL [Concomitant]
     Active Substance: LISINOPRIL
     Dosage: 20 MILLIGRAM, QD
     Route: 048
  12. LOVASTATIN [Concomitant]
     Active Substance: LOVASTATIN
     Dosage: 20 MILLIGRAM
     Dates: start: 20201014
  13. OMEPRAZOLE [Concomitant]
     Active Substance: OMEPRAZOLE
     Dosage: 20 MILLIGRAM
     Dates: start: 20201014
  14. ONDANSETRON [Concomitant]
     Active Substance: ONDANSETRON
     Dosage: 4 MILLIGRAM, Q8H AS NEEDED
  15. SACCHAROMYCES CEREVISIAE [Concomitant]
     Active Substance: SACCHAROMYCES CEREVISIAE
     Dosage: 250 MILLIGRAM, QD
     Route: 048
     Dates: end: 20220207
  16. SULFAMETHOXAZOLE\TRIMETHOPRIM [Concomitant]
     Active Substance: SULFAMETHOXAZOLE\TRIMETHOPRIM
     Dosage: 1 TABLET BY MOUTH 3 TIMES A WEEK. MONDAY, WEDNESDAY, FRIDAY
     Dates: start: 20210614, end: 20211227

REACTIONS (14)
  - Spinal fracture [Unknown]
  - Hip arthroplasty [Unknown]
  - Spinal compression fracture [Unknown]
  - Hydronephrosis [Unknown]
  - Bursitis [Unknown]
  - Decreased immune responsiveness [Unknown]
  - Back disorder [Unknown]
  - Pelvic mass [Unknown]
  - Lymphadenopathy [Unknown]
  - Renal cyst [Unknown]
  - Swollen tongue [Recovered/Resolved]
  - Hiatus hernia [Unknown]
  - Spinal osteoarthritis [Unknown]
  - Urinary tract infection [Unknown]

NARRATIVE: CASE EVENT DATE: 20200518
